FAERS Safety Report 4347282-2 (Version None)
Quarter: 2004Q1

REPORT INFORMATION
  Report Type: 
  Country: None (occurrence: None)
  Receive Date: 20040325
  Receipt Date: 20031201
  Transmission Date: 20041129
  Serious: No
  Sender: FDA-Public Use
  Company Number: USA031253641

PATIENT
  Age: 58 Year
  Sex: Female

DRUGS (6)
  1. FORTEO [Suspect]
     Indication: OSTEOPOROSIS
     Dates: start: 20031001
  2. ACCUPRIL [Concomitant]
  3. SINEQUAN [Concomitant]
  4. PAXIL [Concomitant]
  5. TYLENOL W/ CODEINE [Concomitant]
  6. EVISTA [Concomitant]

REACTIONS (2)
  - HAIR GROWTH ABNORMAL [None]
  - HYPOTRICHOSIS [None]
